FAERS Safety Report 5161714-1 (Version None)
Quarter: 2006Q4

REPORT INFORMATION
  Report Type: 
  Country: None (occurrence: None)
  Receive Date: 20061130
  Receipt Date: 20061009
  Transmission Date: 20070319
  Serious: Yes (Hospitalization)
  Sender: FDA-Public Use
  Company Number: GR-ELI_LILLY_AND_COMPANY-GR200610001352

PATIENT
  Age: 80 Year
  Sex: Female
  Weight: 65 kg

DRUGS (5)
  1. TERIPARATIDE [Suspect]
     Indication: OSTEOPOROSIS
     Dosage: 20 UG, DAILY (1/D)
     Route: 058
     Dates: start: 20060901, end: 20060901
  2. PREZOLON [Concomitant]
     Indication: POLYMYALGIA RHEUMATICA
     Dosage: 7.5 MG, DAILY (1/D)
     Route: 048
     Dates: start: 20040101
  3. ADALAT [Concomitant]
     Indication: HYPERTENSION
     Dosage: 30 MG, DAILY (1/D)
     Route: 048
     Dates: start: 20040101
  4. KARVEA [Concomitant]
     Indication: HYPERTENSION
     Dosage: 150 MG, DAILY (1/D)
     Route: 048
     Dates: start: 20050101
  5. CALCIUM W/COLECALCIFEROL [Concomitant]
     Indication: OSTEOPOROSIS
     Dosage: 500 MG, DAILY (1/D)
     Route: 048
     Dates: start: 20040101

REACTIONS (2)
  - HYPERSENSITIVITY [None]
  - TACHYCARDIA [None]
